FAERS Safety Report 7045031-0 (Version None)
Quarter: 2010Q4

REPORT INFORMATION
  Report Type: 
  Country: None (occurrence: None)
  Receive Date: 20101014
  Receipt Date: 20101004
  Transmission Date: 20110411
  Serious: Yes (Other)
  Sender: FDA-Public Use
  Company Number: PHHY2010JP18797

PATIENT
  Age: 49 Year
  Sex: Female

DRUGS (3)
  1. SANDOSTATIN [Suspect]
     Indication: GASTROINTESTINAL OBSTRUCTION
     Dosage: 300 UG, UNK
     Route: 058
  2. MORPHINE [Concomitant]
     Indication: VISCERAL PAIN
  3. ATROPINE [Concomitant]
     Indication: VISCERAL PAIN

REACTIONS (5)
  - DISEASE PROGRESSION [None]
  - GASTROINTESTINAL TUBE INSERTION [None]
  - NASOGASTRIC OUTPUT HIGH [None]
  - NAUSEA [None]
  - NO THERAPEUTIC RESPONSE [None]
